FAERS Safety Report 8221760-8 (Version None)
Quarter: 2012Q1

REPORT INFORMATION
  Report Type: 
  Country: None (occurrence: None)
  Receive Date: 20120320
  Receipt Date: 20120320
  Transmission Date: 20120608
  Serious: No
  Sender: FDA-Public Use
  Company Number: None

PATIENT
  Age: 10 Year
  Sex: Male
  Weight: 31.751 kg

DRUGS (1)
  1. SINGULAIR [Suspect]
     Dosage: HALF CHILDREN'S DOSE
     Route: 048

REACTIONS (6)
  - HYPERHIDROSIS [None]
  - FEELING ABNORMAL [None]
  - AMNESIA [None]
  - LACRIMATION INCREASED [None]
  - FEELING OF DESPAIR [None]
  - DEPRESSED MOOD [None]
